FAERS Safety Report 14568947 (Version 1)
Quarter: 2018Q1

REPORT INFORMATION
  Report Type: Spontaneous
  Country: BE (occurrence: BE)
  Receive Date: 20180223
  Receipt Date: 20180223
  Transmission Date: 20180509
  Serious: Yes (Life-Threatening, Hospitalization)
  Sender: FDA-Public Use
  Company Number: BE-B.I. PHARMACEUTICALS,INC./RIDGEFIELD-2017-BI-065219

PATIENT
  Age: 62 Year
  Sex: Male

DRUGS (8)
  1. LEVODOPA [Concomitant]
     Active Substance: LEVODOPA
     Indication: PARKINSON^S DISEASE
     Dosage: SIX TIMES DAILY.
     Route: 065
  2. SIFROL [Suspect]
     Active Substance: PRAMIPEXOLE
     Route: 065
     Dates: start: 20100101
  3. ROPINIROLE. [Suspect]
     Active Substance: ROPINIROLE
     Indication: PARKINSON^S DISEASE
     Route: 065
  4. RASAGILINE. [Suspect]
     Active Substance: RASAGILINE
     Route: 065
     Dates: start: 20080101
  5. LEVODOPA [Concomitant]
     Active Substance: LEVODOPA
     Route: 065
  6. RASAGILINE. [Suspect]
     Active Substance: RASAGILINE
     Indication: PARKINSON^S DISEASE
     Route: 065
  7. ENTACAPONE. [Concomitant]
     Active Substance: ENTACAPONE
     Indication: PARKINSON^S DISEASE
     Route: 065
  8. SIFROL [Suspect]
     Active Substance: PRAMIPEXOLE
     Indication: PARKINSON^S DISEASE
     Route: 065

REACTIONS (7)
  - Asthenia [Recovered/Resolved]
  - Shock [Recovered/Resolved]
  - Bradycardia [Recovered/Resolved]
  - Oedema peripheral [Recovered/Resolved]
  - Cardiac failure [Recovered/Resolved]
  - Oedema [Recovered/Resolved]
  - Drug ineffective [Unknown]
